FAERS Safety Report 7391321-1 (Version None)
Quarter: 2011Q2

REPORT INFORMATION
  Report Type: 
  Country: None (occurrence: None)
  Receive Date: 20110404
  Receipt Date: 20110328
  Transmission Date: 20111010
  Serious: Yes (Other)
  Sender: FDA-Public Use
  Company Number: US-JNJFOC-20110312388

PATIENT
  Sex: Female
  Weight: 42.18 kg

DRUGS (7)
  1. TEMAZEPAM [Concomitant]
     Indication: SLEEP DISORDER
     Route: 048
  2. LEVAQUIN [Suspect]
     Indication: PNEUMONIA
     Route: 048
  3. PROZAC [Concomitant]
     Indication: FIBROMYALGIA
     Route: 048
  4. OMEPRAZOLE [Concomitant]
     Indication: GASTRIC DISORDER
     Route: 048
  5. METOPROLOL [Concomitant]
     Indication: BLOOD PRESSURE
     Route: 048
  6. LOVASTATIN [Concomitant]
     Indication: BLOOD CHOLESTEROL ABNORMAL
     Route: 048
  7. LISINOPRIL [Concomitant]
     Indication: BLOOD PRESSURE
     Route: 048

REACTIONS (7)
  - HYPOAESTHESIA [None]
  - DIARRHOEA [None]
  - DISORIENTATION [None]
  - ABNORMAL LOSS OF WEIGHT [None]
  - TREMOR [None]
  - CONFUSIONAL STATE [None]
  - MEMORY IMPAIRMENT [None]
